FAERS Safety Report 16869932 (Version 1)
Quarter: 2019Q3

REPORT INFORMATION
  Report Type: Report from Study
  Country: IT (occurrence: IT)
  Receive Date: 20190930
  Receipt Date: 20190930
  Transmission Date: 20191005
  Serious: Yes (Hospitalization, Other)
  Sender: FDA-Public Use
  Company Number: IT-MYLANLABS-2019M1090767

PATIENT
  Age: 63 Year
  Sex: Male

DRUGS (5)
  1. FONDAPARINUX [Suspect]
     Active Substance: FONDAPARINUX
     Indication: VENOUS THROMBOSIS
     Dosage: 1 DOSAGE FORM, QD
     Route: 058
     Dates: start: 20190301, end: 20190911
  2. INDERAL [Concomitant]
     Active Substance: PROPRANOLOL HYDROCHLORIDE
  3. TERAXANS [Concomitant]
     Active Substance: INDAPAMIDE\PERINDOPRIL ARGININE
  4. NEXIUM [Concomitant]
     Active Substance: ESOMEPRAZOLE MAGNESIUM
  5. PLAVIX [Suspect]
     Active Substance: CLOPIDOGREL BISULFATE
     Indication: ANTIPLATELET THERAPY
     Dosage: 75 MILLIGRAM, QD
     Route: 048
     Dates: start: 20180101, end: 20190911

REACTIONS (3)
  - Venous haemorrhage [Not Recovered/Not Resolved]
  - Incorrect product administration duration [Unknown]
  - Melaena [Not Recovered/Not Resolved]

NARRATIVE: CASE EVENT DATE: 20190911
